FAERS Safety Report 6855883-2 (Version None)
Quarter: 2010Q2

REPORT INFORMATION
  Report Type: 
  Country: None (occurrence: None)
  Receive Date: 20100629
  Receipt Date: 20100318
  Transmission Date: 20101027
  Serious: No
  Sender: FDA-Public Use
  Company Number: US-WYE-H14269110

PATIENT
  Age: 74 Year
  Sex: Female
  Weight: 59.02 kg

DRUGS (4)
  1. PRISTIQ [Suspect]
     Indication: DEPRESSION
     Dosage: 50 MG 2X PER 1 DAY
     Dates: start: 20100101
  2. LISINOPRIL [Concomitant]
  3. ASPIRIN [Concomitant]
  4. VITAMINS NOS (VITAMINS NOS) [Concomitant]

REACTIONS (3)
  - CONTUSION [None]
  - HOT FLUSH [None]
  - HYPERHIDROSIS [None]
